FAERS Safety Report 6126107-9 (Version None)
Quarter: 2009Q1

REPORT INFORMATION
  Report Type: 
  Country: None (occurrence: None)
  Receive Date: 20090320
  Receipt Date: 20090313
  Transmission Date: 20090719
  Serious: Yes (Death, Hospitalization)
  Sender: FDA-Public Use
  Company Number: A0716466A

PATIENT
  Age: 74 Year
  Sex: Male
  Weight: 95.5 kg

DRUGS (5)
  1. AVANDIA [Suspect]
     Dosage: 4MG PER DAY
     Route: 048
     Dates: start: 20040601, end: 20070601
  2. INSULIN [Concomitant]
     Dates: end: 20070601
  3. ASPIRIN [Concomitant]
  4. MULTI-VITAMIN [Concomitant]
  5. METAMUCIL [Concomitant]

REACTIONS (1)
  - MYOCARDIAL INFARCTION [None]
